FAERS Safety Report 8682967 (Version 3)
Quarter: 2013Q4

REPORT INFORMATION
  Report Type: Spontaneous
  Country: US (occurrence: US)
  Receive Date: 20120725
  Receipt Date: 20131107
  Transmission Date: 20140711
  Serious: Yes (Disabling)
  Sender: FDA-Public Use
  Company Number: US-MSD-1207USA008186

PATIENT
  Age: 52 Year
  Sex: Male

DRUGS (3)
  1. PEGINTRON [Suspect]
     Indication: CHRONIC HEPATITIS C
     Dosage: 150 MICROGRAM, QW
     Dates: start: 20120427, end: 20120716
  2. RIBASPHERE [Suspect]
     Dosage: UNK
     Dates: start: 20120427, end: 20120716
  3. TELAPREVIR [Suspect]
     Dosage: UNK

REACTIONS (14)
  - Headache [Recovering/Resolving]
  - Anaemia [Recovering/Resolving]
  - Anxiety [Recovering/Resolving]
  - Diarrhoea [Recovering/Resolving]
  - Generalised oedema [Recovering/Resolving]
  - Rash [Recovering/Resolving]
  - Dyspnoea [Recovering/Resolving]
  - Cough [Recovering/Resolving]
  - Gastrointestinal pain [Recovering/Resolving]
  - Decreased appetite [Recovering/Resolving]
  - Mood swings [Recovering/Resolving]
  - Depression [Recovering/Resolving]
  - Fatigue [Recovering/Resolving]
  - Visual impairment [Recovering/Resolving]
